FAERS Safety Report 7716627-5 (Version None)
Quarter: 2011Q3

REPORT INFORMATION
  Report Type: 
  Country: None (occurrence: None)
  Receive Date: 20110829
  Receipt Date: 20110823
  Transmission Date: 20111222
  Serious: Yes (Other)
  Sender: FDA-Public Use
  Company Number: US-PFIZER INC-2010072261

PATIENT
  Sex: Female
  Weight: 74.8 kg

DRUGS (23)
  1. DIAZEPAM [Concomitant]
     Indication: BLOOD PRESSURE INCREASED
     Dosage: 2 MG, UNK
  2. OMEPRAZOLE [Concomitant]
     Dosage: 20 MG, 2X/DAY
  3. SUDAFED 12 HOUR [Concomitant]
     Dosage: 30 MG, 2X/DAY
  4. LYRICA [Suspect]
     Indication: MYALGIA
  5. VICODIN [Concomitant]
     Dosage: 5/500
  6. LYRICA [Suspect]
     Indication: TENDON PAIN
  7. CLARITIN [Concomitant]
     Dosage: 10 MG, 1X/DAY
  8. PEPCID [Concomitant]
     Dosage: 20 MG, 2X/DAY
  9. TRAZODONE [Concomitant]
     Dosage: 50MG 2-3 TABLETS ONCE A DAY
  10. ADVAIR DISKUS 100/50 [Concomitant]
     Dosage: 239/21
  11. CALCIUM WITH VITAMIN D [Concomitant]
     Dosage: 2000 IU, 2X/DAY
  12. ATIVAN [Concomitant]
     Dosage: 1 MG, UNK
  13. VENTOLIN HFA [Concomitant]
     Dosage: 90 UG, AS NEEDED
  14. FOSAMAX [Concomitant]
     Dosage: 70 MG, 1X/DAY
  15. AMBIEN [Concomitant]
     Indication: INSOMNIA
     Dosage: 10 MG ONCE A DAY AS NEEDED
  16. ATIVAN [Concomitant]
     Indication: ANXIETY
     Dosage: 1 MG, AS NEEDED
  17. LYRICA [Suspect]
  18. PRAVASTATIN [Concomitant]
     Dosage: 80 MG, 1X/DAY
  19. PRAVASTATIN [Concomitant]
     Dosage: 80 MG, UNK
  20. LYRICA [Suspect]
     Indication: ARTHRALGIA
     Dosage: 150 MG, 2X/DAY
     Route: 048
     Dates: start: 20100301
  21. LYRICA [Suspect]
     Indication: PAIN
  22. PATANOL [Concomitant]
     Dosage: UNK
     Route: 047
  23. DEPAKOTE [Concomitant]
     Dosage: 250 MG, 2X/DAY

REACTIONS (10)
  - ARTHRITIS [None]
  - INSOMNIA [None]
  - PAIN [None]
  - WITHDRAWAL SYNDROME [None]
  - DECREASED APPETITE [None]
  - DISCOMFORT [None]
  - BEDRIDDEN [None]
  - ARTHRALGIA [None]
  - INFLUENZA [None]
  - FEELING ABNORMAL [None]
